FAERS Safety Report 4380918-9 (Version None)
Quarter: 2004Q2

REPORT INFORMATION
  Report Type: 
  Country: None (occurrence: None)
  Receive Date: 20040616
  Receipt Date: 20040607
  Transmission Date: 20050107
  Serious: Yes (Life-Threatening, Hospitalization, Disabling, Other)
  Sender: FDA-Public Use
  Company Number: 2004-04-1295

PATIENT
  Age: 55 Year
  Sex: Male
  Weight: 72 kg

DRUGS (13)
  1. REBETOL [Suspect]
     Indication: HEPATITIS C
     Dosage: 800-400 MG* ORAL
     Route: 048
     Dates: start: 20040203, end: 20040223
  2. REBETOL [Suspect]
     Indication: HEPATITIS C
     Dosage: 800-400 MG* ORAL
     Route: 048
     Dates: start: 20040203, end: 20040417
  3. REBETOL [Suspect]
     Indication: HEPATITIS C
     Dosage: 800-400 MG* ORAL
     Route: 048
     Dates: start: 20040224, end: 20040417
  4. INTRON A [Suspect]
     Indication: HEPATITIS C
     Dosage: 10-6MU*6-3X/W INTRAMUSCULAR : 10 MU 6X/W INTRAMUSCULAR : 6 MU TIW INTRAMUSCULAR
     Route: 030
     Dates: start: 20040203, end: 20040212
  5. INTRON A [Suspect]
     Indication: HEPATITIS C
     Dosage: 10-6MU*6-3X/W INTRAMUSCULAR : 10 MU 6X/W INTRAMUSCULAR : 6 MU TIW INTRAMUSCULAR
     Route: 030
     Dates: start: 20040203, end: 20040417
  6. INTRON A [Suspect]
     Indication: HEPATITIS C
     Dosage: 10-6MU*6-3X/W INTRAMUSCULAR : 10 MU 6X/W INTRAMUSCULAR : 6 MU TIW INTRAMUSCULAR
     Route: 030
     Dates: start: 20040216, end: 20040417
  7. HARNAL (TAMSULOSIN HYDROCHLORIDE) [Concomitant]
  8. BUP-4 [Concomitant]
  9. CARMELLOSE SODIUM [Concomitant]
  10. LENDORM [Concomitant]
  11. IMIDAPRIL HCL [Concomitant]
  12. AMARYL [Concomitant]
  13. HERBAL MEDICATION [Concomitant]

REACTIONS (9)
  - ANAEMIA [None]
  - DEPRESSION [None]
  - GENERALISED OEDEMA [None]
  - GLYCOSYLATED HAEMOGLOBIN INCREASED [None]
  - RETINAL HAEMORRHAGE [None]
  - RETINAL VEIN OCCLUSION [None]
  - RETINOPATHY [None]
  - VISION BLURRED [None]
  - VISUAL ACUITY REDUCED [None]
